FAERS Safety Report 6430870-7 (Version None)
Quarter: 2009Q4

REPORT INFORMATION
  Report Type: 
  Country: None (occurrence: None)
  Receive Date: 20091106
  Receipt Date: 20091026
  Transmission Date: 20100525
  Serious: Yes (Hospitalization, Other)
  Sender: FDA-Public Use
  Company Number: GB-PFIZER INC-2009268591

PATIENT
  Age: 59 Year
  Sex: Male

DRUGS (10)
  1. SUNITINIB MALATE [Suspect]
     Indication: RENAL CELL CARCINOMA
     Dosage: 50 MG, 1X/DAY
     Dates: start: 20090806, end: 20090902
  2. ATENOLOL [Concomitant]
     Dosage: UNK
     Dates: start: 20090821
  3. CHLORZOXAZONE [Concomitant]
     Dosage: UNK
     Dates: start: 20090907, end: 20090910
  4. INDOMETHACIN [Concomitant]
     Dosage: UNK
     Dates: start: 20090907, end: 20090910
  5. METOCLOPRAMIDE [Concomitant]
     Dosage: UNK
     Dates: start: 20090907, end: 20090910
  6. PANTOPRAZOLE [Concomitant]
     Dosage: UNK
     Dates: start: 20090908, end: 20090910
  7. PARACETAMOL [Concomitant]
     Dosage: UNK
     Dates: start: 20090909, end: 20090910
  8. TRAMADOL HYDROCHLORIDE [Concomitant]
     Dosage: UNK
     Dates: start: 20090909, end: 20090910
  9. DEXTROSE [Concomitant]
     Dosage: UNK
     Dates: start: 20090910, end: 20090910
  10. DEXTROPROPOXYPHENE [Concomitant]
     Dosage: UNK
     Dates: start: 20090909

REACTIONS (3)
  - ALANINE AMINOTRANSFERASE INCREASED [None]
  - BLOOD BILIRUBIN INCREASED [None]
  - THROMBOCYTOPENIA [None]
